FAERS Safety Report 21863342 (Version 1)
Quarter: 2023Q1

REPORT INFORMATION
  Report Type: Spontaneous
  Country: DE (occurrence: DE)
  Receive Date: 20230115
  Receipt Date: 20230115
  Transmission Date: 20230418
  Serious: Yes (Hospitalization, Other)
  Sender: FDA-Public Use
  Company Number: DE-ELI_LILLY_AND_COMPANY-DE202301001079

PATIENT
  Age: 75 Year
  Sex: Female
  Weight: 43 kg

DRUGS (2)
  1. TALTZ [Suspect]
     Active Substance: IXEKIZUMAB
     Indication: Rheumatic disorder
     Dosage: 80 MG, OTHER (EVERY 4 WEEKS)
     Route: 058
  2. CANDESARTAN [Concomitant]
     Active Substance: CANDESARTAN
     Indication: Product used for unknown indication
     Dosage: 16 MG, BID

REACTIONS (19)
  - Candida infection [Unknown]
  - Fluid retention [Unknown]
  - Upper gastrointestinal haemorrhage [Unknown]
  - Gastritis erosive [Unknown]
  - Gastrooesophageal reflux disease [Unknown]
  - Breast pain [Unknown]
  - Weight decreased [Unknown]
  - Rheumatic disorder [Recovering/Resolving]
  - Fungal oesophagitis [Unknown]
  - Pulmonary oedema [Unknown]
  - Large intestinal ulcer [Unknown]
  - Cellulitis [Unknown]
  - Oropharyngeal pain [Unknown]
  - Inflammatory bowel disease [Unknown]
  - Drug intolerance [Unknown]
  - Blood creatinine increased [Unknown]
  - Coagulation test abnormal [Unknown]
  - Renal function test abnormal [Unknown]
  - Off label use [Unknown]
